FAERS Safety Report 22173564 (Version 2)
Quarter: 2023Q2

REPORT INFORMATION
  Report Type: Spontaneous
  Country: US (occurrence: US)
  Receive Date: 20230404
  Receipt Date: 20230502
  Transmission Date: 20230722
  Serious: No
  Sender: FDA-Public Use
  Company Number: US-BAUSCHBL-2023BNL002661

PATIENT
  Age: 74 Year
  Sex: Female
  Weight: 68.100 kg

DRUGS (1)
  1. LOTEMAX SM [Suspect]
     Active Substance: LOTEPREDNOL ETABONATE
     Indication: Postoperative care
     Route: 047
     Dates: start: 202301, end: 2023

REACTIONS (6)
  - Instillation site erythema [Unknown]
  - Instillation site irritation [Unknown]
  - Dry eye [Unknown]
  - Eye discharge [Unknown]
  - Instillation site foreign body sensation [Unknown]
  - Product quality issue [Unknown]
